FAERS Safety Report 6466075-3 (Version None)
Quarter: 2009Q4

REPORT INFORMATION
  Report Type: 
  Country: None (occurrence: None)
  Receive Date: 20091202
  Receipt Date: 20091125
  Transmission Date: 20100525
  Serious: Yes (Other)
  Sender: FDA-Public Use
  Company Number: NL-JNJFOC-20091107234

PATIENT
  Sex: Female

DRUGS (8)
  1. REMINYL [Suspect]
  2. REMINYL [Suspect]
  3. REMINYL [Suspect]
     Indication: DEMENTIA ALZHEIMER'S TYPE
  4. FELODIPINE [Concomitant]
     Indication: HYPERTENSION
  5. GLICLAZIDE [Concomitant]
     Indication: DIABETES MELLITUS
  6. METFORMIN HCL [Concomitant]
     Indication: DIABETES MELLITUS
  7. METOPROLOL [Concomitant]
     Indication: HYPERTENSION
  8. RAMIPRIL [Concomitant]
     Indication: HYPERTENSION

REACTIONS (5)
  - DIZZINESS [None]
  - FALL [None]
  - INCORRECT DOSE ADMINISTERED [None]
  - OVERDOSE [None]
  - SYNCOPE [None]
